FAERS Safety Report 26111219 (Version 2)
Quarter: 2025Q4

REPORT INFORMATION
  Report Type: Report from Study
  Country: US (occurrence: US)
  Receive Date: 20251202
  Receipt Date: 20251202
  Transmission Date: 20260118
  Serious: Yes (Hospitalization, Other)
  Sender: UNITED THERAPEUTICS
  Company Number: US-UNITED THERAPEUTICS-UNT-2025-040125

PATIENT
  Age: 3 Year
  Sex: Male
  Weight: 12.2 kg

DRUGS (24)
  1. UNITUXIN [Suspect]
     Active Substance: DINUTUXIMAB
     Indication: Neuroblastoma
     Dosage: 41.3 MG, CYCLICAL (CYCLE 2)
     Route: 041
     Dates: start: 20250813, end: 20250816
  2. UNITUXIN [Suspect]
     Active Substance: DINUTUXIMAB
     Dosage: 38.5 MG, CYCLICAL (CYCLE 3)
     Route: 041
     Dates: start: 20250903, end: 20250906
  3. UNITUXIN [Suspect]
     Active Substance: DINUTUXIMAB
     Dosage: 39.2 MG, CYCLICAL (CYCLE 4)
     Route: 041
     Dates: start: 20250924, end: 20250927
  4. UNITUXIN [Suspect]
     Active Substance: DINUTUXIMAB
     Dosage: 38.5 MG, CYCLICAL (CYCLE 5)
     Route: 041
     Dates: start: 20251016, end: 20251019
  5. CISPLATIN [Suspect]
     Active Substance: CISPLATIN
     Indication: Neuroblastoma
     Dosage: 102 MG, CYCLICAL (CYCLE 3)
     Dates: start: 20250902, end: 20250904
  6. CISPLATIN [Suspect]
     Active Substance: CISPLATIN
     Dosage: 102 MG, CYCLICAL (CYCLE 5)
     Dates: start: 20251015, end: 20251017
  7. CYCLOPHOSPHAMIDE [Suspect]
     Active Substance: CYCLOPHOSPHAMIDE
     Indication: Neuroblastoma
     Dosage: 1100 MG, CYCLICAL (CYCLE 1)
     Dates: start: 20250718, end: 20250722
  8. CYCLOPHOSPHAMIDE [Suspect]
     Active Substance: CYCLOPHOSPHAMIDE
     Dosage: 1100 MG, CYCLICAL (CYCLE 2)
     Dates: start: 20250812, end: 20250816
  9. CYCLOPHOSPHAMIDE [Suspect]
     Active Substance: CYCLOPHOSPHAMIDE
     Dosage: 2200 MG, CYCLICAL (CYCLE 4)
     Dates: start: 20250923, end: 20250924
  10. ZINECARD [Suspect]
     Active Substance: DEXRAZOXANE HYDROCHLORIDE
     Indication: Neuroblastoma
     Dosage: 400 MG, CYCLICAL (CYCLE 4)
     Dates: start: 20250923, end: 20250924
  11. DOXORUBICIN HYDROCHLORIDE [Suspect]
     Active Substance: DOXORUBICIN HYDROCHLORIDE
     Indication: Neuroblastoma
     Dosage: 40 MG, CYCLICAL (CYCLE 4)
     Dates: start: 20250923, end: 20250924
  12. ETOPOSIDE [Suspect]
     Active Substance: ETOPOSIDE
     Indication: Neuroblastoma
     Dosage: 336 MG, CYCLICAL (CYCLE 3)
     Dates: start: 20250902, end: 20250904
  13. ETOPOSIDE [Suspect]
     Active Substance: ETOPOSIDE
     Dosage: 336 MG, CYCLICAL (CYCLE 5)
     Dates: start: 20251015, end: 20251017
  14. LEUKINE [Suspect]
     Active Substance: SARGRAMOSTIM
     Indication: Neuroblastoma
     Dosage: 1770 MCG, CYCLICAL (CYCLE 2)
  15. LEUKINE [Suspect]
     Active Substance: SARGRAMOSTIM
     Dosage: 2475 MCG, CYCLICAL (CYCLE 3)
  16. LEUKINE [Suspect]
     Active Substance: SARGRAMOSTIM
     Dosage: 2100 MCG, CYCLICAL (CYCLE 4)
  17. LEUKINE [Suspect]
     Active Substance: SARGRAMOSTIM
     Dosage: 2100 MCG, CYCLICAL (CYCLE 5)
  18. LEUKINE [Suspect]
     Active Substance: SARGRAMOSTIM
     Dosage: 2612.5 MCG, CYCLICAL
     Dates: start: 20251018, end: 20251027
  19. TOPOTECAN [Suspect]
     Active Substance: TOPOTECAN HYDROCHLORIDE
     Indication: Neuroblastoma
     Dosage: 3.4 MG, CYCLICAL (CYCLE 1)
     Dates: start: 20250718, end: 20250722
  20. TOPOTECAN [Suspect]
     Active Substance: TOPOTECAN HYDROCHLORIDE
     Dosage: 3.4 MG, CYCLICAL (CYCLE 2)
     Dates: start: 20250812, end: 20250816
  21. VINCRISTINE SULFATE [Suspect]
     Active Substance: VINCRISTINE SULFATE
     Indication: Neuroblastoma
     Dosage: 1.1 MG, CYCLICAL (CYCLE 4)
  22. FILGRASTIM [Suspect]
     Active Substance: FILGRASTIM
     Indication: Neuroblastoma
     Dosage: 966 MCG, CYCLICAL (CYCLE 1)
     Dates: start: 20250723, end: 20250805
  23. FILGRASTIM [Suspect]
     Active Substance: FILGRASTIM
     Dosage: 504 MCG, CYCLICAL (CYCLE 2)
     Dates: start: 20250821, end: 20250828
  24. MESNA [Suspect]
     Active Substance: MESNA
     Indication: Neuroblastoma
     Dosage: 2202 MG, CYCLICAL
     Dates: start: 20250923, end: 20250924

REACTIONS (2)
  - Colitis [Recovering/Resolving]
  - Generalised oedema [Recovered/Resolved]

NARRATIVE: CASE EVENT DATE: 20251016
